FAERS Safety Report 9334937 (Version 1)
Quarter: 2013Q2

REPORT INFORMATION
  Report Type: Spontaneous
  Country: US (occurrence: US)
  Receive Date: 20130606
  Receipt Date: 20130606
  Transmission Date: 20140414
  Serious: No
  Sender: FDA-Public Use
  Company Number: US-AMGEN-USASP2013027987

PATIENT
  Age: 59 Year
  Sex: Female

DRUGS (14)
  1. PROLIA [Suspect]
     Indication: OSTEOPOROSIS POSTMENOPAUSAL
     Dosage: 60 MG, Q6MO
     Dates: start: 20130307
  2. PROLIA [Suspect]
  3. NEURONTIN [Concomitant]
     Dosage: 600 MG, TID
  4. CRESTOR [Concomitant]
     Dosage: 20 MG, QD
  5. SPIRIVA [Concomitant]
  6. SYMBICORT [Concomitant]
     Dosage: UNK UNK, BID
  7. VITAMIN D                          /00107901/ [Concomitant]
     Dosage: 50000 IU, UNK
  8. CALCIUM [Concomitant]
     Dosage: UNK UNK, BID
  9. NEXIUM                             /01479302/ [Concomitant]
     Dosage: 20 MG, QD
  10. MAGNESIUM OXIDE [Concomitant]
     Dosage: 400 MG, BID
  11. COREG [Concomitant]
     Dosage: 3.125 MG, BID
  12. ASPIRIN [Concomitant]
     Dosage: 81 MG, UNK
  13. LASIX                              /00032601/ [Concomitant]
     Dosage: 40 MG, BID
  14. XANAX [Concomitant]
     Dosage: 1 MG, TID

REACTIONS (2)
  - Nail disorder [Unknown]
  - Nail growth abnormal [Unknown]
